FAERS Safety Report 18248844 (Version 2)
Quarter: 2020Q4

REPORT INFORMATION
  Report Type: Report from Study
  Country: US (occurrence: US)
  Receive Date: 20200909
  Receipt Date: 20201001
  Transmission Date: 20210113
  Serious: No
  Sender: FDA-Public Use
  Company Number: US-SA-2020SA241823

PATIENT

DRUGS (13)
  1. VORICONAZOLE. [Interacting]
     Active Substance: VORICONAZOLE
     Indication: FUNGAL DISEASE CARRIER
     Dosage: UNK
     Dates: start: 2020, end: 20200916
  2. AZITHROMYCIN ANHYDROUS. [Interacting]
     Active Substance: AZITHROMYCIN ANHYDROUS
  3. XOLAIR [Concomitant]
     Active Substance: OMALIZUMAB
     Indication: OCULAR HYPERAEMIA
  4. XOLAIR [Concomitant]
     Active Substance: OMALIZUMAB
     Indication: EYE SWELLING
  5. BUDESONIDE. [Concomitant]
     Active Substance: BUDESONIDE
     Indication: ASTHMA
     Dosage: UNK UNK, BID
  6. ADVAIR HFA [Concomitant]
     Active Substance: FLUTICASONE PROPIONATE\SALMETEROL XINAFOATE
     Indication: ASTHMA
  7. DUPILUMAB [Suspect]
     Active Substance: DUPILUMAB
     Indication: ASTHMA
     Dosage: 600 MG, 1X
     Route: 058
     Dates: start: 202006, end: 202006
  8. DUPILUMAB [Suspect]
     Active Substance: DUPILUMAB
     Dosage: 300 MG, QOW
     Route: 058
     Dates: start: 202006
  9. XOLAIR [Concomitant]
     Active Substance: OMALIZUMAB
     Indication: ERYTHEMA OF EYELID
  10. PREDNISONE. [Concomitant]
     Active Substance: PREDNISONE
     Indication: ASTHMA
     Dosage: UNK
     Dates: start: 2019
  11. IPRATROPIUM BROMIDE. [Concomitant]
     Active Substance: IPRATROPIUM BROMIDE
     Indication: ASTHMA
     Dosage: UNK UNK, BID
  12. XOLAIR [Concomitant]
     Active Substance: OMALIZUMAB
     Indication: PERIORBITAL SWELLING
  13. SINGULAIR [Concomitant]
     Active Substance: MONTELUKAST SODIUM
     Indication: ASTHMA

REACTIONS (12)
  - Cardiac disorder [Recovered/Resolved]
  - Hypoacusis [Not Recovered/Not Resolved]
  - Eye irritation [Unknown]
  - Sinus disorder [Not Recovered/Not Resolved]
  - Drug interaction [Unknown]
  - Hypersensitivity [Not Recovered/Not Resolved]
  - Cough [Not Recovered/Not Resolved]
  - Fungal disease carrier [Recovered/Resolved]
  - Heart rate increased [Recovered/Resolved]
  - Sinusitis [Unknown]
  - Off label use [Unknown]
  - Heart rate irregular [Recovered/Resolved]

NARRATIVE: CASE EVENT DATE: 2020
